FAERS Safety Report 17430439 (Version 1)
Quarter: 2020Q1

REPORT INFORMATION
  Report Type: Spontaneous
  Country: US (occurrence: US)
  Receive Date: 20200216
  Receipt Date: 20200216
  Transmission Date: 20200409
  Serious: Yes (Disabling)
  Sender: FDA-Public Use
  Company Number: None

PATIENT
  Age: 63 Year
  Sex: Female
  Weight: 60.75 kg

DRUGS (10)
  1. VITAMIN D3 [Concomitant]
     Active Substance: CHOLECALCIFEROL
  2. AIMOVIG [Suspect]
     Active Substance: ERENUMAB-AOOE
     Indication: MIGRAINE
     Dosage: ?          QUANTITY:1 INJECTION(S);OTHER FREQUENCY:ONCE MONTHLY;?
     Route: 030
     Dates: start: 20191204
  3. FLEXERIL 10MG PRN [Concomitant]
  4. ASPIRIN 81MG [Concomitant]
     Active Substance: ASPIRIN
  5. MAGNESIUM [Concomitant]
     Active Substance: MAGNESIUM
  6. VITAMINS 1,C,E ZINC AND SELENIUM) EQUATE BRAND [Concomitant]
  7. TRAMADOL 50MG [Concomitant]
     Active Substance: TRAMADOL
  8. METHYL B12 AND B9 [Concomitant]
  9. BIOTIN [Concomitant]
     Active Substance: BIOTIN
  10. COENZYME Q10 [Concomitant]
     Active Substance: UBIDECARENONE

REACTIONS (5)
  - Vitreous haemorrhage [None]
  - Photopsia [None]
  - Vitreous floaters [None]
  - Visual impairment [None]
  - Vitreous detachment [None]

NARRATIVE: CASE EVENT DATE: 20191223
